FAERS Safety Report 11594038 (Version 1)
Quarter: 2015Q4

REPORT INFORMATION
  Report Type: Spontaneous
  Country: US (occurrence: US)
  Receive Date: 20151005
  Receipt Date: 20151005
  Transmission Date: 20160304
  Serious: No
  Sender: FDA-Public Use
  Company Number: US-PERRIGO-15US001286

PATIENT
  Age: 57 Year
  Sex: Male
  Weight: 102.4 kg

DRUGS (1)
  1. DOXYLAMINE SUCCINATE 25 MG 441 [Suspect]
     Active Substance: DOXYLAMINE SUCCINATE
     Indication: INITIAL INSOMNIA
     Dosage: 25 MG, SINGLE
     Route: 048
     Dates: start: 20150203, end: 20150203

REACTIONS (1)
  - Drug ineffective [Unknown]

NARRATIVE: CASE EVENT DATE: 20150203
